FAERS Safety Report 25269889 (Version 1)
Quarter: 2025Q2

REPORT INFORMATION
  Report Type: Spontaneous
  Country: US (occurrence: US)
  Receive Date: 20250505
  Receipt Date: 20250505
  Transmission Date: 20250716
  Serious: Yes (Life-Threatening, Hospitalization)
  Sender: HETERO
  Company Number: US-AMAROX PHARMA-HET2025US02091

PATIENT
  Age: 30 Year
  Sex: Female

DRUGS (3)
  1. VENLAFAXINE [Suspect]
     Active Substance: VENLAFAXINE HYDROCHLORIDE
     Indication: Depression
     Route: 065
  2. PREGABALIN [Concomitant]
     Active Substance: PREGABALIN
     Indication: Nerve compression
     Route: 065
  3. FENTANYL [Concomitant]
     Active Substance: FENTANYL
     Indication: Nerve compression
     Route: 065

REACTIONS (3)
  - Multi-organ disorder [Recovering/Resolving]
  - Exertional rhabdomyolysis [Recovering/Resolving]
  - Acute kidney injury [Recovering/Resolving]
